FAERS Safety Report 5964833-2 (Version None)
Quarter: 2008Q4

REPORT INFORMATION
  Report Type: 
  Country: None (occurrence: None)
  Receive Date: 20081124
  Receipt Date: 20081124
  Transmission Date: 20090506
  Serious: No
  Sender: FDA-Public Use
  Company Number: None

PATIENT
  Age: 78 Year
  Sex: Male

DRUGS (1)
  1. SARGRAMOSTIM [Suspect]
     Indication: NEUTROPENIA
     Dosage: 500 MCG QWEEK SQ
     Route: 058
     Dates: start: 20080905, end: 20080915

REACTIONS (1)
  - MYALGIA [None]
